FAERS Safety Report 6399229-5 (Version None)
Quarter: 2009Q4

REPORT INFORMATION
  Report Type: 
  Country: None (occurrence: None)
  Receive Date: 20091014
  Receipt Date: 20070905
  Transmission Date: 20100525
  Serious: Yes (Hospitalization, Other)
  Sender: FDA-Public Use
  Company Number: US-ASTRAZENECA-2006UW27789

PATIENT
  Age: 652 Month
  Sex: Male
  Weight: 140.6 kg

DRUGS (24)
  1. SEROQUEL [Suspect]
     Indication: DEPRESSION
     Dosage: 25 MG, 50 MG, 100 MG, 200 MG
     Route: 048
     Dates: start: 20021017, end: 20061001
  2. SEROQUEL [Suspect]
     Dosage: 200 - 800 MG DAILY
     Route: 048
     Dates: start: 20050518
  3. KLONOPIN [Concomitant]
     Dates: start: 20030101
  4. KLONOPIN [Concomitant]
     Dosage: 2-3 MG DAILY
     Route: 048
     Dates: start: 20050518
  5. WELLBUTRIN [Concomitant]
  6. WELLBUTRIN [Concomitant]
     Route: 048
     Dates: start: 20050518
  7. PAXIL [Concomitant]
  8. DIAZEPAM [Concomitant]
  9. TOPROL-XL [Concomitant]
     Route: 048
  10. TOPROL-XL [Concomitant]
     Dosage: 25 - 50 MG DAILY
     Route: 048
     Dates: start: 20020809
  11. HYZAAR [Concomitant]
  12. HYZAAR [Concomitant]
     Dosage: STRENGTH: 100 MG/25 MG. DOSE: ONE-HALF TABLET DAILY
     Route: 048
     Dates: start: 20020809
  13. ZOCOR [Concomitant]
  14. OXYCONTIN [Concomitant]
  15. ZANAFLEX [Concomitant]
  16. ATIVAN [Concomitant]
     Route: 048
  17. NEURONTIN [Concomitant]
     Route: 048
     Dates: start: 20030101
  18. NEURONTIN [Concomitant]
     Route: 048
     Dates: start: 20050518
  19. MS CONTIN [Concomitant]
     Indication: BREAKTHROUGH PAIN
     Dosage: 60 - 240 MG DAILY
     Route: 048
     Dates: start: 20050906
  20. BUMEX [Concomitant]
     Route: 048
     Dates: start: 20050906
  21. ZAROXOLYN [Concomitant]
     Route: 048
     Dates: start: 20050906
  22. LIPITOR [Concomitant]
     Route: 048
     Dates: start: 20050906
  23. AVAPRO [Concomitant]
     Dates: start: 20060123
  24. CYMBALTA [Concomitant]
     Dates: start: 20060123

REACTIONS (9)
  - DIABETES MELLITUS INADEQUATE CONTROL [None]
  - DIABETIC COMA [None]
  - DIABETIC KETOACIDOSIS [None]
  - GLYCOSURIA [None]
  - HYPEROSMOLAR STATE [None]
  - MALIGNANT MELANOMA [None]
  - NEUROPATHY PERIPHERAL [None]
  - TYPE 2 DIABETES MELLITUS [None]
  - URINARY TRACT DISORDER [None]
